FAERS Safety Report 22120920 (Version 1)
Quarter: 2023Q1

REPORT INFORMATION
  Report Type: Report from Study
  Country: US (occurrence: US)
  Receive Date: 20230321
  Receipt Date: 20230321
  Transmission Date: 20230418
  Serious: No
  Sender: FDA-Public Use
  Company Number: US-002147023-NVSC2023US062297

PATIENT
  Sex: Female
  Weight: 130 kg

DRUGS (1)
  1. TREPROSTINIL [Suspect]
     Active Substance: TREPROSTINIL
     Indication: Pulmonary arterial hypertension
     Dosage: 71 NG(KG/MIN)
     Route: 042
     Dates: start: 20190729

REACTIONS (1)
  - Injection site haemorrhage [Unknown]
